FAERS Safety Report 8537952-4 (Version None)
Quarter: 2012Q3

REPORT INFORMATION
  Report Type: 
  Country: None (occurrence: None)
  Receive Date: 20120725
  Receipt Date: 20120716
  Transmission Date: 20120928
  Serious: Yes (Hospitalization)
  Sender: FDA-Public Use
  Company Number: US-ABBOTT-12P-163-0957606-00

PATIENT
  Sex: Female
  Weight: 79.45 kg

DRUGS (14)
  1. VERAPAMIL [Concomitant]
     Indication: HYPERTENSION
  2. HUMIRA [Suspect]
     Dates: start: 20120713
  3. METFORMIN HYDROCHLORIDE [Concomitant]
     Indication: DIABETES MELLITUS
  4. CELEXA [Concomitant]
     Indication: DEPRESSION
  5. LISINOPRIL [Concomitant]
     Indication: HYPERTENSION
  6. TRAZODONE HYDROCHLORIDE [Concomitant]
     Indication: DEPRESSION
  7. HYDROCODONE [Concomitant]
     Indication: CROHN'S DISEASE
  8. AMBIEN [Concomitant]
     Indication: SLEEP DISORDER THERAPY
  9. GLYBURIDE [Concomitant]
     Indication: DIABETES MELLITUS
  10. METOPROLOL SUCCINATE [Concomitant]
     Indication: HYPERTENSION
  11. HUMIRA [Suspect]
     Indication: CROHN'S DISEASE
     Dates: start: 20111001, end: 20120501
  12. BENTYL [Concomitant]
     Indication: CROHN'S DISEASE
  13. REGLAN [Concomitant]
     Indication: CROHN'S DISEASE
  14. PHENERGAN HCL [Concomitant]
     Indication: CROHN'S DISEASE

REACTIONS (5)
  - VOMITING [None]
  - ASTHENIA [None]
  - CROHN'S DISEASE [None]
  - CONSTIPATION [None]
  - FATIGUE [None]
